FAERS Safety Report 18941616 (Version 18)
Quarter: 2023Q1

REPORT INFORMATION
  Report Type: Report from Study
  Country: US (occurrence: US)
  Receive Date: 20210225
  Receipt Date: 20230119
  Transmission Date: 20230418
  Serious: Yes (Other)
  Sender: FDA-Public Use
  Company Number: US-GLAXOSMITHKLINE-US2020AMR256822

PATIENT

DRUGS (1)
  1. BELANTAMAB MAFODOTIN [Suspect]
     Active Substance: BELANTAMAB MAFODOTIN
     Indication: Product used for unknown indication
     Dosage: UNK
     Dates: start: 20201117

REACTIONS (8)
  - Cornea verticillata [Unknown]
  - Keratopathy [Recovering/Resolving]
  - Visual acuity reduced [Recovering/Resolving]
  - Night blindness [Recovered/Resolved]
  - Photophobia [Unknown]
  - Dry eye [Recovered/Resolved]
  - Foreign body sensation in eyes [Recovered/Resolved]
  - Hypertrophy [Unknown]

NARRATIVE: CASE EVENT DATE: 20201229
